FAERS Safety Report 17076056 (Version 2)
Quarter: 2025Q4

REPORT INFORMATION
  Report Type: Spontaneous
  Country: JP (occurrence: JP)
  Receive Date: 20191126
  Receipt Date: 20251117
  Transmission Date: 20260117
  Serious: Yes (Other)
  Sender: PFIZER
  Company Number: JP-PFIZER INC-2019504021

PATIENT
  Sex: Male
  Weight: 1.938 kg

DRUGS (12)
  1. OXALIPLATIN [Suspect]
     Active Substance: OXALIPLATIN
     Indication: Metastatic gastric cancer
     Dosage: 130 MG/M2, CYCLIC, (4 CYCLES)
     Route: 064
  2. TRASTUZUMAB [Suspect]
     Active Substance: TRASTUZUMAB
     Indication: Metastatic gastric cancer
     Dosage: 8 MG/KG, CYCLIC, (4 CYCLES)
     Route: 064
  3. TS-1 [Suspect]
     Active Substance: GIMERACIL\OTERACIL POTASSIUM\TEGAFUR
     Indication: Metastatic gastric cancer
     Dosage: 80 MG, DAILY (80 MG/DAY FROM DAY 1 TO DAY 14, 4 CYCLES)
     Route: 064
  4. PREGABALIN [Suspect]
     Active Substance: PREGABALIN
     Indication: Neuralgia
     Dosage: UNK
     Route: 064
  5. PREGABALIN [Suspect]
     Active Substance: PREGABALIN
     Dosage: 100 MG, DAILY
     Route: 064
  6. PREGABALIN [Suspect]
     Active Substance: PREGABALIN
     Dosage: 150 MG, DAILY
     Route: 064
  7. ACETAMINOPHEN [Suspect]
     Active Substance: ACETAMINOPHEN
     Indication: Back pain
     Dosage: 2400 MG, DAILY
     Route: 064
  8. ACETAMINOPHEN [Suspect]
     Active Substance: ACETAMINOPHEN
     Dosage: 40000 MG, DAILY
     Route: 064
  9. FENTANYL [Suspect]
     Active Substance: FENTANYL
     Indication: Back pain
     Dosage: 8 MCG/HR
     Route: 064
  10. FENTANYL [Suspect]
     Active Substance: FENTANYL
     Dosage: 16 MCG/HR
     Route: 064
  11. FENTANYL [Suspect]
     Active Substance: FENTANYL
     Dosage: 24 MCG/HR
     Route: 064
  12. OXYCODONE [Suspect]
     Active Substance: OXYCODONE
     Indication: Back pain
     Dosage: 10 MG, DAILY
     Route: 064

REACTIONS (3)
  - Maternal exposure during pregnancy [Unknown]
  - Premature baby [Unknown]
  - Cyanosis neonatal [Unknown]
